FAERS Safety Report 16126083 (Version 1)
Quarter: 2019Q1

REPORT INFORMATION
  Report Type: Spontaneous
  Country: FR (occurrence: FR)
  Receive Date: 20190328
  Receipt Date: 20190328
  Transmission Date: 20190418
  Serious: Yes (Hospitalization)
  Sender: FDA-Public Use
  Company Number: FR-TEVA-2019-FR-1029533

PATIENT
  Age: 92 Year
  Sex: Female
  Weight: 65 kg

DRUGS (7)
  1. PANTOPRAZOLE [Suspect]
     Active Substance: PANTOPRAZOLE
     Indication: PROPHYLAXIS AGAINST GASTROINTESTINAL ULCER
     Dosage: 20 MILLIGRAM DAILY;
     Route: 048
     Dates: end: 20190128
  2. TEMESTA [Concomitant]
     Dosage: 1 MILLIGRAM DAILY;
     Route: 048
     Dates: start: 20190125, end: 20190128
  3. VIMPAT [Suspect]
     Active Substance: LACOSAMIDE
     Indication: EPILEPSY
     Dosage: 100 MILLIGRAM DAILY;
     Route: 048
     Dates: start: 20181225
  4. DOLIPRANE [Concomitant]
     Active Substance: ACETAMINOPHEN
  5. KARDEGIC [Concomitant]
     Active Substance: ASPIRIN DL-LYSINE
  6. AMOXICILLINE [Suspect]
     Active Substance: AMOXICILLIN
     Indication: URINARY TRACT INFECTION
     Dosage: 2 GRAM DAILY;
     Dates: start: 20190113, end: 20190123
  7. RAMIPRIL. [Concomitant]
     Active Substance: RAMIPRIL

REACTIONS (3)
  - Hallucination, visual [Recovered/Resolved]
  - Confusional state [Recovering/Resolving]
  - Irregular sleep wake rhythm disorder [Recovering/Resolving]

NARRATIVE: CASE EVENT DATE: 20190124
